FAERS Safety Report 8326405-4 (Version None)
Quarter: 2012Q2

REPORT INFORMATION
  Report Type: 
  Country: None (occurrence: None)
  Receive Date: 20120501
  Receipt Date: 20120426
  Transmission Date: 20120825
  Serious: Yes (Hospitalization)
  Sender: FDA-Public Use
  Company Number: US-MERCK-1112USA00791

PATIENT
  Age: 83 Year
  Sex: Female

DRUGS (4)
  1. VITAMINS (UNSPECIFIED) [Concomitant]
     Route: 048
     Dates: start: 19800101
  2. FOSAMAX [Suspect]
     Indication: OSTEOPENIA
     Route: 048
     Dates: start: 19970101, end: 20080101
  3. FOSAMAX [Suspect]
     Indication: OSTEOPOROSIS
     Route: 048
     Dates: start: 19970101, end: 20080101
  4. ALENDRONATE SODIUM [Suspect]
     Route: 048
     Dates: start: 20080228, end: 20090101

REACTIONS (5)
  - LIGAMENT SPRAIN [None]
  - FEMUR FRACTURE [None]
  - OSTEOARTHRITIS [None]
  - ANXIETY [None]
  - BLOOD PRESSURE INCREASED [None]
